FAERS Safety Report 5898357-8 (Version None)
Quarter: 2008Q3

REPORT INFORMATION
  Report Type: 
  Country: None (occurrence: None)
  Receive Date: 20080925
  Receipt Date: 20070928
  Transmission Date: 20090109
  Serious: No
  Sender: FDA-Public Use
  Company Number: A0685039A

PATIENT
  Sex: Male

DRUGS (3)
  1. WELLBUTRIN XL [Suspect]
     Indication: DEPRESSION
     Dosage: 150MG PER DAY
     Route: 048
     Dates: start: 20070924, end: 20070924
  2. HIV ANTIVIRAL AGENTS UNSPECIFIED [Concomitant]
  3. LYRICA [Concomitant]

REACTIONS (1)
  - DIZZINESS [None]
